FAERS Safety Report 4939173-0 (Version None)
Quarter: 2006Q1

REPORT INFORMATION
  Report Type: 
  Country: None (occurrence: None)
  Receive Date: 20060309
  Receipt Date: 20060309
  Transmission Date: 20060701
  Serious: Yes (Hospitalization)
  Sender: FDA-Public Use
  Company Number: None

PATIENT
  Sex: Male
  Weight: 84.9 kg

DRUGS (3)
  1. FLUDARABINE PHOSPHATE [Suspect]
     Indication: APLASTIC ANAEMIA
     Dosage: 63 MG  DAILY  IV DRIP
     Route: 041
     Dates: start: 20060118, end: 20060122
  2. MELPHALAN [Suspect]
     Indication: APLASTIC ANAEMIA
     Dosage: 294 MG  ONCE  IV DRIP
     Route: 041
     Dates: start: 20060123, end: 20060123
  3. CAMPATH [Concomitant]

REACTIONS (6)
  - DYSPNOEA EXERTIONAL [None]
  - FATIGUE [None]
  - HAEMATOCRIT DECREASED [None]
  - HAEMOGLOBIN DECREASED [None]
  - LUNG NEOPLASM [None]
  - OXYGEN SATURATION DECREASED [None]
